FAERS Safety Report 19921153 (Version 4)
Quarter: 2021Q4

REPORT INFORMATION
  Report Type: Spontaneous
  Country: PT (occurrence: PT)
  Receive Date: 20211005
  Receipt Date: 20211129
  Transmission Date: 20220303
  Serious: Yes (Other)
  Sender: FDA-Public Use
  Company Number: PT-GILEAD-2021-0548021

PATIENT
  Age: 61 Year
  Sex: Male

DRUGS (18)
  1. YESCARTA [Suspect]
     Active Substance: AXICABTAGENE CILOLEUCEL
     Indication: Diffuse large B-cell lymphoma refractory
     Dosage: UNK
     Route: 042
     Dates: start: 20210421, end: 20210421
  2. PREDNISOLONE [Concomitant]
     Active Substance: PREDNISOLONE
  3. CYCLOPHOSPHAMIDE [Concomitant]
     Active Substance: CYCLOPHOSPHAMIDE
  4. ETOPOSIDE [Concomitant]
     Active Substance: ETOPOSIDE
  5. PROCARBAZINE [Concomitant]
     Active Substance: PROCARBAZINE
  6. FLUDARABINE [Concomitant]
     Active Substance: FLUDARABINE PHOSPHATE
  7. ALLOPURINOL [Concomitant]
     Active Substance: ALLOPURINOL
  8. RASBURICASE [Concomitant]
     Active Substance: RASBURICASE
  9. ACYCLOVIR [Concomitant]
     Active Substance: ACYCLOVIR
  10. CIPROFLOXACIN [Concomitant]
     Active Substance: CIPROFLOXACIN
  11. POSACONAZOLE [Concomitant]
     Active Substance: POSACONAZOLE
  12. LEVETIRACETAM [Concomitant]
     Active Substance: LEVETIRACETAM
  13. PIPERACILLIN AND TAZOBACTAM [Concomitant]
     Active Substance: PIPERACILLIN SODIUM\TAZOBACTAM SODIUM
  14. OXYGEN [Concomitant]
     Active Substance: OXYGEN
  15. TOCILIZUMAB [Concomitant]
     Active Substance: TOCILIZUMAB
  16. TEICOPLANIN [Concomitant]
     Active Substance: TEICOPLANIN
  17. DEXAMETHASONE [Concomitant]
     Active Substance: DEXAMETHASONE
  18. METHYLPREDNISOLONE [Concomitant]
     Active Substance: METHYLPREDNISOLONE

REACTIONS (32)
  - Pericardial effusion [Not Recovered/Not Resolved]
  - Hypogammaglobulinaemia [Not Recovered/Not Resolved]
  - Immune effector cell-associated neurotoxicity syndrome [Recovered/Resolved]
  - Cytokine release syndrome [Recovered/Resolved]
  - Encephalopathy [Recovered/Resolved]
  - Cytopenia [Not Recovered/Not Resolved]
  - Pyrexia [Recovered/Resolved]
  - Pleuritic pain [Recovered/Resolved]
  - Pleural effusion [Recovered/Resolved]
  - Pyrexia [Recovered/Resolved]
  - Hypotension [Recovered/Resolved]
  - Hypoxia [Recovered/Resolved]
  - Urine output decreased [Recovered/Resolved]
  - Pyrexia [Recovered/Resolved]
  - Neurological symptom [Recovered/Resolved]
  - Dysgraphia [Recovered/Resolved]
  - Aphasia [Recovered/Resolved]
  - Gait disturbance [Recovered/Resolved]
  - Confusional state [Recovered/Resolved]
  - Language disorder [Recovered/Resolved]
  - Action tremor [Recovered/Resolved]
  - Dysarthria [Recovered/Resolved]
  - Aphasia [Recovered/Resolved]
  - Aphasia [Recovered/Resolved]
  - Disorientation [Recovered/Resolved]
  - Confusional state [Recovered/Resolved]
  - Fine motor skill dysfunction [Recovered/Resolved]
  - Leukopenia [Unknown]
  - Thrombocytopenia [Not Recovered/Not Resolved]
  - Anaemia [Not Recovered/Not Resolved]
  - Platelet count abnormal [Not Recovered/Not Resolved]
  - Splenomegaly [Not Recovered/Not Resolved]

NARRATIVE: CASE EVENT DATE: 20210101
